FAERS Safety Report 6894950-4 (Version None)
Quarter: 2010Q3

REPORT INFORMATION
  Report Type: 
  Country: None (occurrence: None)
  Receive Date: 20100802
  Receipt Date: 20100721
  Transmission Date: 20110219
  Serious: Yes (Other)
  Sender: FDA-Public Use
  Company Number: US-ROCHE-714898

PATIENT
  Sex: Female

DRUGS (9)
  1. AVASTIN [Suspect]
     Indication: COLON CANCER STAGE IV
     Dosage: INTURRUPTED FOR 6 MONTHS
     Route: 042
     Dates: start: 20070101, end: 20090101
  2. AVASTIN [Suspect]
     Route: 042
     Dates: start: 20100101, end: 20100101
  3. XELODA [Suspect]
     Indication: COLON CANCER STAGE IV
     Dosage: DOSE, FORM AND FREQUENCY NOT PROVIDED.
     Route: 048
     Dates: start: 20090101
  4. XELODA [Suspect]
     Dosage: DOSE, FORM AND FREQUENCY NOT PROVIDED.
     Route: 048
     Dates: start: 20100101
  5. IRINOTECAN HCL [Suspect]
     Indication: COLON CANCER STAGE IV
     Dosage: DOSE, FORM AND FREQUENCY NOT PROVIDED.
     Route: 065
  6. OXALIPLATIN [Suspect]
     Indication: COLON CANCER STAGE IV
     Dosage: DOSE, FORM AND FREQUENCY NOT PROVIDED.
     Route: 065
     Dates: start: 20080101
  7. OXALIPLATIN [Suspect]
     Dosage: REINTRODUCED AND DISCONTINUED ONCE AGAIN.
     Route: 065
     Dates: start: 20090101, end: 20090101
  8. FLUOROURACIL [Suspect]
     Indication: COLON CANCER STAGE IV
     Dosage: DOSE, FORM AND FREQUENCY NOT PROVIDED.
     Route: 065
  9. LEUCOVORIN CALCIUM [Suspect]
     Indication: COLON CANCER STAGE IV
     Dosage: DOSE, FORM AND FREQUENCY NOT PROVIDED.
     Route: 065

REACTIONS (10)
  - ABDOMINAL DISCOMFORT [None]
  - ABDOMINAL DISTENSION [None]
  - ASCITES [None]
  - BACK PAIN [None]
  - DECREASED APPETITE [None]
  - FLANK PAIN [None]
  - LUNG DISORDER [None]
  - METASTASES TO SPINE [None]
  - PAIN IN JAW [None]
  - SKIN LACERATION [None]
